FAERS Safety Report 5500559-7 (Version None)
Quarter: 2007Q4

REPORT INFORMATION
  Report Type: 
  Country: None (occurrence: None)
  Receive Date: 20071025
  Receipt Date: 20071012
  Transmission Date: 20080405
  Serious: Yes (Other)
  Sender: FDA-Public Use
  Company Number: 071016-0001220

PATIENT
  Age: 5 Year

DRUGS (3)
  1. NEMBUTAL [Suspect]
     Indication: SEDATION
     Dosage: IV
     Route: 042
  2. MIDAZOLAM HCL [Suspect]
     Indication: SEDATION
  3. FENTANYL [Suspect]
     Indication: SEDATION

REACTIONS (3)
  - APNOEA [None]
  - HYPOVENTILATION [None]
  - HYPOXIA [None]
